FAERS Safety Report 6975049-5 (Version None)
Quarter: 2010Q3

REPORT INFORMATION
  Report Type: 
  Country: None (occurrence: None)
  Receive Date: 20100910
  Receipt Date: 20090127
  Transmission Date: 20110219
  Serious: No
  Sender: FDA-Public Use
  Company Number: US-WYE-H07969809

PATIENT
  Sex: Female
  Weight: 77.18 kg

DRUGS (5)
  1. ADVIL PM [Suspect]
     Indication: INSOMNIA
     Dosage: 1 CAPLET X 1
     Route: 048
     Dates: start: 20090120, end: 20090120
  2. ACETYLSALICYLIC ACID [Concomitant]
  3. SYNTHROID [Concomitant]
  4. LISINOPRIL [Concomitant]
  5. ALDACTAZIDE [Concomitant]

REACTIONS (1)
  - RESTLESS LEGS SYNDROME [None]
